FAERS Safety Report 7055560-1 (Version None)
Quarter: 2010Q4

REPORT INFORMATION
  Report Type: 
  Country: None (occurrence: None)
  Receive Date: 20101021
  Receipt Date: 20101008
  Transmission Date: 20110411
  Serious: Yes (Other)
  Sender: FDA-Public Use
  Company Number: PHHY2010CA68017

PATIENT
  Sex: Female

DRUGS (2)
  1. SANDOSTATIN LAR [Suspect]
     Indication: NEUROENDOCRINE TUMOUR
     Dosage: 20 MG EVERY 4 WEEKS
     Route: 030
     Dates: start: 20050104
  2. SANDOSTATIN [Suspect]
     Dosage: 100 UG, TID
     Route: 058

REACTIONS (2)
  - DIARRHOEA [None]
  - HEART VALVE INCOMPETENCE [None]
